FAERS Safety Report 21454572 (Version 1)
Quarter: 2022Q4

REPORT INFORMATION
  Report Type: Spontaneous
  Country: US (occurrence: None)
  Receive Date: 20221013
  Receipt Date: 20221013
  Transmission Date: 20230113
  Serious: No
  Sender: FDA-Public Use
  Company Number: None

PATIENT
  Sex: Male

DRUGS (2)
  1. OTEZLA [Suspect]
     Active Substance: APREMILAST
     Indication: Seborrhoeic dermatitis
     Dosage: 30MG TWICE DAILY ORAL?
     Route: 048
     Dates: start: 202204
  2. OTEZLA [Suspect]
     Active Substance: APREMILAST
     Indication: Seborrhoeic dermatitis
     Dosage: 30MG TWICE DAILY ORAL?
     Route: 048
     Dates: start: 202204

REACTIONS (1)
  - Drug ineffective [None]
